FAERS Safety Report 4799688-5 (Version None)
Quarter: 2005Q4

REPORT INFORMATION
  Report Type: 
  Country: None (occurrence: None)
  Receive Date: 20051013
  Receipt Date: 20050927
  Transmission Date: 20060501
  Serious: Yes (Other)
  Sender: FDA-Public Use
  Company Number: 2005130530

PATIENT
  Age: 61 Year
  Sex: Male
  Weight: 80 kg

DRUGS (9)
  1. VFEND [Suspect]
     Indication: FUSARIUM INFECTION
     Dosage: 480 MG (BID)
     Dates: start: 20050904, end: 20050907
  2. VALACICLOVIR HYDROCHLORIDE (VALACICLOVIR HYDROCHLORIDE) [Concomitant]
  3. OMEPRAZOLE [Concomitant]
  4. CILASTATIN SODIUM W/IMIPENEM (CILASTATIN SODIUM, IMIPENEM) [Concomitant]
  5. VANCOMYCIN HYDROCHLORIDE [Concomitant]
  6. GENTAMICINE SULFATE  (GENTAMICIN) [Concomitant]
  7. MORPHINE SULFATE [Concomitant]
  8. ACIDE PHOSPHORIQUE; CALCIUM BISDIH (ALL OTHER THERAPEUTIC PRODUCTS) [Concomitant]
  9. IMIPENEM (IMIPENEM) [Concomitant]

REACTIONS (4)
  - AGGRESSION [None]
  - AGITATION [None]
  - DELIRIUM [None]
  - HALLUCINATION [None]
